FAERS Safety Report 11332140 (Version 1)
Quarter: 2015Q3

REPORT INFORMATION
  Report Type: Spontaneous
  Country: MX (occurrence: MX)
  Receive Date: 20150803
  Receipt Date: 20150803
  Transmission Date: 20151125
  Serious: Yes (Hospitalization)
  Sender: FDA-Public Use
  Company Number: MX-BAYER-2015-388196

PATIENT
  Age: 50 Year
  Sex: Male

DRUGS (4)
  1. NAPROXEN SODIUM ({= 220 MG) [Suspect]
     Active Substance: NAPROXEN SODIUM
     Dosage: 1 DF, QD
  2. MINIPRES [Suspect]
     Active Substance: PRAZOSIN HYDROCHLORIDE
     Indication: BLOOD PRESSURE INCREASED
     Dosage: 1 MG, QD
  3. HIGROTON [Concomitant]
     Active Substance: CHLORTHALIDONE
     Dosage: 1 DF, QD
  4. METOPROLOL [Concomitant]
     Active Substance: METOPROLOL
     Dosage: 1 DF, QD

REACTIONS (3)
  - Blood pressure decreased [Recovered/Resolved]
  - Syncope [Recovered/Resolved]
  - Blood pressure increased [None]
